FAERS Safety Report 5456543-5 (Version None)
Quarter: 2007Q3

REPORT INFORMATION
  Report Type: 
  Country: None (occurrence: None)
  Receive Date: 20070918
  Receipt Date: 20070914
  Transmission Date: 20080115
  Serious: Yes (Other)
  Sender: FDA-Public Use
  Company Number: A0682487A

PATIENT
  Age: 2 Year
  Sex: Male
  Weight: 17.5 kg

DRUGS (2)
  1. CLAVULIN [Suspect]
     Indication: RESPIRATORY TRACT INFECTION
     Route: 048
     Dates: start: 20070908
  2. CLARITIN [Concomitant]
     Dates: start: 20070907

REACTIONS (4)
  - GASTROINTESTINAL HAEMORRHAGE [None]
  - PROCTALGIA [None]
  - RASH [None]
  - REACTION TO COLOURING [None]
